FAERS Safety Report 10227842 (Version 1)
Quarter: 2014Q2

REPORT INFORMATION
  Report Type: Spontaneous
  Country: US (occurrence: US)
  Receive Date: 20140610
  Receipt Date: 20140610
  Transmission Date: 20141212
  Serious: No
  Sender: FDA-Public Use
  Company Number: US-BAYER-2014-080747

PATIENT
  Age: 62 Year
  Sex: Female
  Weight: 72.56 kg

DRUGS (4)
  1. ALEVE CAPLET [Suspect]
     Indication: INFLAMMATION
     Dosage: 4 DF, QD WITH FOOD
     Route: 048
     Dates: end: 2006
  2. ALEVE CAPLET [Suspect]
     Indication: PAIN
     Dosage: 2 DF, BID
     Route: 048
     Dates: start: 201405
  3. MULTIVITAMINS [Concomitant]
  4. HUMIRA [Concomitant]

REACTIONS (5)
  - Extra dose administered [None]
  - Incorrect drug administration duration [None]
  - Abdominal pain upper [Recovered/Resolved]
  - Off label use [None]
  - Extra dose administered [None]
